FAERS Safety Report 11434529 (Version 1)
Quarter: 2015Q3

REPORT INFORMATION
  Report Type: Report from Study
  Country: DE (occurrence: DE)
  Receive Date: 20150831
  Receipt Date: 20150831
  Transmission Date: 20151125
  Serious: Yes (Hospitalization)
  Sender: FDA-Public Use
  Company Number: DE-ABBVIE-15K-062-1451725-00

PATIENT
  Age: 50 Year
  Sex: Male
  Weight: 104 kg

DRUGS (2)
  1. HUMIRA [Suspect]
     Active Substance: ADALIMUMAB
     Indication: PSORIASIS
     Route: 058
     Dates: start: 20150324
  2. HUMIRA [Suspect]
     Active Substance: ADALIMUMAB
     Indication: PSORIATIC ARTHROPATHY

REACTIONS (10)
  - Inguinal hernia [Unknown]
  - Hiatus hernia [Unknown]
  - Subileus [Unknown]
  - Large intestine polyp [Unknown]
  - Abdominal pain [Recovering/Resolving]
  - Irritable bowel syndrome [Recovered/Resolved]
  - Colon adenoma [Unknown]
  - Constipation [Recovering/Resolving]
  - Colon dysplasia [Unknown]
  - Flatulence [Recovering/Resolving]

NARRATIVE: CASE EVENT DATE: 201506
